FAERS Safety Report 7950490-2 (Version None)
Quarter: 2011Q4

REPORT INFORMATION
  Report Type: 
  Country: None (occurrence: None)
  Receive Date: 20111130
  Receipt Date: 20111026
  Transmission Date: 20120403
  Serious: Yes (Death, Other)
  Sender: FDA-Public Use
  Company Number: IT-CELGENEUS-083-21880-11102953

PATIENT

DRUGS (7)
  1. THALIDOMIDE [Suspect]
     Indication: MULTIPLE MYELOMA
     Route: 065
  2. CYCLOPHOSPHAMIDE [Concomitant]
     Indication: MULTIPLE MYELOMA
     Route: 065
  3. PREDNISONE TAB [Concomitant]
     Indication: MULTIPLE MYELOMA
     Route: 065
  4. REVLIMID [Suspect]
     Indication: MULTIPLE MYELOMA
     Route: 048
  5. MELPHALAN HYDROCHLORIDE [Concomitant]
     Indication: MULTIPLE MYELOMA
     Route: 065
  6. CORTICOIDS [Concomitant]
     Indication: MULTIPLE MYELOMA
     Route: 065
  7. BORTEZOMIB [Concomitant]
     Indication: MULTIPLE MYELOMA
     Route: 065

REACTIONS (7)
  - GASTROINTESTINAL CARCINOMA [None]
  - BREAST CANCER [None]
  - GENITAL NEOPLASM MALIGNANT FEMALE [None]
  - LUNG NEOPLASM MALIGNANT [None]
  - SKIN CANCER [None]
  - MULTIPLE MYELOMA [None]
  - ACUTE LEUKAEMIA [None]
